FAERS Safety Report 5902512-8 (Version None)
Quarter: 2008Q3

REPORT INFORMATION
  Report Type: 
  Country: None (occurrence: None)
  Receive Date: 20080929
  Receipt Date: 20080915
  Transmission Date: 20090109
  Serious: Yes (Hospitalization)
  Sender: FDA-Public Use
  Company Number: US-GENENTECH-268681

PATIENT
  Age: 53 Year
  Sex: Female

DRUGS (4)
  1. BEVACIZUMAB [Suspect]
     Indication: GLIOBLASTOMA MULTIFORME
     Dosage: 10 MG/KG, Q2W
     Route: 042
  2. TEMOZOLOMIDE [Suspect]
     Indication: GLIOBLASTOMA MULTIFORME
     Dosage: 75 MG/M2, QD
  3. TEMOZOLOMIDE [Suspect]
     Dosage: 100 MG/M2, UNK
     Route: 048
  4. RADIATION THERAPY [Concomitant]
     Indication: GLIOBLASTOMA MULTIFORME
     Dosage: 200 UNK, UNK

REACTIONS (3)
  - DIABETES INSIPIDUS [None]
  - NEUTROPENIA [None]
  - RENAL FAILURE ACUTE [None]
